FAERS Safety Report 7050522-2 (Version None)
Quarter: 2010Q4

REPORT INFORMATION
  Report Type: 
  Country: None (occurrence: None)
  Receive Date: 20101018
  Receipt Date: 20101013
  Transmission Date: 20110411
  Serious: Yes (Hospitalization)
  Sender: FDA-Public Use
  Company Number: US-CEPHALON-2010004768

PATIENT
  Sex: Male
  Weight: 107 kg

DRUGS (5)
  1. TREANDA [Suspect]
     Indication: CHRONIC LYMPHOCYTIC LEUKAEMIA
     Route: 041
     Dates: start: 20100802, end: 20100803
  2. OFATUMUMAB [Suspect]
     Indication: CHRONIC LYMPHOCYTIC LEUKAEMIA
     Route: 042
     Dates: start: 20100726, end: 20100726
  3. OFATUMUMAB [Suspect]
     Route: 042
     Dates: start: 20100727, end: 20100802
  4. HYDROCHLOROTHIAZIDE [Concomitant]
  5. MICARDIS [Concomitant]

REACTIONS (11)
  - ATAXIA [None]
  - ATRIAL FIBRILLATION [None]
  - BLUNTED AFFECT [None]
  - CANDIDIASIS [None]
  - FAILURE TO THRIVE [None]
  - FATIGUE [None]
  - HAEMOGLOBIN [None]
  - HYPOTENSION [None]
  - MUSCULAR WEAKNESS [None]
  - NEUTROPENIA [None]
  - PNEUMONIA [None]
